FAERS Safety Report 12485739 (Version 1)
Quarter: 2016Q2

REPORT INFORMATION
  Report Type: Spontaneous
  Country: US (occurrence: US)
  Receive Date: 20160621
  Receipt Date: 20160621
  Transmission Date: 20160815
  Serious: No
  Sender: FDA-Public Use
  Company Number: US-BAYER-2016-119752

PATIENT
  Age: 48 Year
  Sex: Male
  Weight: 79.36 kg

DRUGS (2)
  1. QUESTRAN [Concomitant]
     Active Substance: CHOLESTYRAMINE
  2. MIRALAX [Suspect]
     Active Substance: POLYETHYLENE GLYCOL 3350
     Indication: COLONOSCOPY
     Dosage: 1 DF, QD
     Route: 048
     Dates: start: 2011

REACTIONS (3)
  - Extra dose administered [None]
  - Off label use [None]
  - Extra dose administered [None]

NARRATIVE: CASE EVENT DATE: 2011
